FAERS Safety Report 11911179 (Version 2)
Quarter: 2016Q4

REPORT INFORMATION
  Report Type: Spontaneous
  Country: BR (occurrence: BR)
  Receive Date: 20160112
  Receipt Date: 20161021
  Transmission Date: 20170206
  Serious: Yes (Hospitalization)
  Sender: FDA-Public Use
  Company Number: BR-DSJP-DSE-2016-101483

PATIENT

DRUGS (2)
  1. BENICAR [Suspect]
     Active Substance: OLMESARTAN MEDOXOMIL
     Indication: HYPERTENSION
     Dosage: 20 MG, QD
     Dates: start: 2011
  2. SINVASTATINA [Concomitant]
     Active Substance: SIMVASTATIN
     Indication: HIGH DENSITY LIPOPROTEIN INCREASED
     Dosage: 1 DF, UNK
     Dates: start: 2011

REACTIONS (2)
  - Prostate cancer [Recovered/Resolved with Sequelae]
  - Erectile dysfunction [Recovered/Resolved]

NARRATIVE: CASE EVENT DATE: 2014
